FAERS Safety Report 9200065 (Version 12)
Quarter: 2020Q3

REPORT INFORMATION
  Report Type: Other
  Country: CA (occurrence: CA)
  Receive Date: 20130329
  Receipt Date: 20200918
  Transmission Date: 20201103
  Serious: Yes (Other)
  Sender: FDA-Public Use
  Company Number: CA-ROCHE-1052550

PATIENT
  Age: 56 Year
  Sex: Female
  Weight: 80 kg

DRUGS (12)
  1. ACTEMRA [Suspect]
     Active Substance: TOCILIZUMAB
     Indication: RHEUMATOID ARTHRITIS
     Route: 042
     Dates: start: 20110111, end: 20200716
  2. METHOTREXATE. [Concomitant]
     Active Substance: METHOTREXATE
  3. WELLBUTRIN [Concomitant]
     Active Substance: BUPROPION HYDROCHLORIDE
  4. ADVAIR HFA [Concomitant]
     Active Substance: FLUTICASONE PROPIONATE\SALMETEROL XINAFOATE
  5. SALBUTAMOL [Concomitant]
     Active Substance: ALBUTEROL
  6. ESTROGEL [Concomitant]
     Active Substance: ESTRADIOL
  7. QUININE [Concomitant]
     Active Substance: QUININE
     Indication: MUSCLE RELAXANT THERAPY
  8. SYNTHROID [Concomitant]
     Active Substance: LEVOTHYROXINE SODIUM
  9. PERCOCET [Concomitant]
     Active Substance: ACETAMINOPHEN\OXYCODONE HYDROCHLORIDE
  10. TEMAZEPAM. [Concomitant]
     Active Substance: TEMAZEPAM
  11. MYOCRISIN [Concomitant]
     Active Substance: GOLD SODIUM THIOMALATE
  12. DURAGESIC (CANADA) [Concomitant]

REACTIONS (14)
  - Arthrodesis [Unknown]
  - Weight increased [Unknown]
  - Wrist surgery [Recovered/Resolved]
  - Wheezing [Unknown]
  - Chest discomfort [Unknown]
  - Shoulder operation [Unknown]
  - Tooth disorder [Unknown]
  - Ulcerative keratitis [Unknown]
  - Shoulder arthroplasty [Recovered/Resolved]
  - Lower respiratory tract infection [Unknown]
  - Tooth loss [Unknown]
  - Asthma [Unknown]
  - Knee arthroplasty [Unknown]
  - Nasopharyngitis [Unknown]

NARRATIVE: CASE EVENT DATE: 20110727
